FAERS Safety Report 8104421-5 (Version None)
Quarter: 2012Q1

REPORT INFORMATION
  Report Type: 
  Country: None (occurrence: None)
  Receive Date: 20120130
  Receipt Date: 20120119
  Transmission Date: 20120608
  Serious: Yes (Hospitalization, Other)
  Sender: FDA-Public Use
  Company Number: CO-JNJFOC-20120108482

PATIENT
  Sex: Female
  Weight: 56 kg

DRUGS (4)
  1. XARELTO [Suspect]
     Route: 065
     Dates: start: 20111130, end: 20111210
  2. XARELTO [Suspect]
     Route: 065
  3. XARELTO [Suspect]
     Indication: KNEE ARTHROPLASTY
     Route: 065
     Dates: start: 20111130, end: 20111210
  4. XARELTO [Suspect]
     Indication: THROMBOSIS PROPHYLAXIS
     Route: 065

REACTIONS (2)
  - CONVULSION [None]
  - DEEP VEIN THROMBOSIS [None]
